FAERS Safety Report 10537724 (Version 1)
Quarter: 2014Q4

REPORT INFORMATION
  Report Type: Spontaneous
  Country: US (occurrence: None)
  Receive Date: 20141022
  Receipt Date: 20141022
  Transmission Date: 20150529
  Serious: Yes (Hospitalization)
  Sender: FDA-Public Use
  Company Number: None

PATIENT
  Age: 62 Year
  Sex: Female
  Weight: 107.3 kg

DRUGS (8)
  1. ERIBULIN [Suspect]
     Active Substance: ERIBULIN
     Indication: BREAST CANCER
     Dosage: 4 MG/M2 D1, D8, Q21D IV
     Route: 042
     Dates: start: 20140715, end: 20140715
  2. MULTIVITAMINS [Concomitant]
     Active Substance: VITAMINS
  3. OXYCODONE [Concomitant]
     Active Substance: OXYCODONE
  4. VITAMIN D3(CHOLECALCIFEROL) [Concomitant]
  5. PRAVASTATIN [Concomitant]
     Active Substance: PRAVASTATIN\PRAVASTATIN SODIUM
  6. NYSTATIN. [Concomitant]
     Active Substance: NYSTATIN
  7. VITAMIN B COMPEX [Concomitant]
  8. PAXIL(PAROXETINE) [Concomitant]

REACTIONS (5)
  - Pyrexia [None]
  - Urinary tract infection [None]
  - Back pain [None]
  - Musculoskeletal pain [None]
  - Vomiting [None]

NARRATIVE: CASE EVENT DATE: 20141019
